FAERS Safety Report 18150966 (Version 2)
Quarter: 2020Q3

REPORT INFORMATION
  Report Type: Spontaneous
  Country: US (occurrence: US)
  Receive Date: 20200814
  Receipt Date: 20200819
  Transmission Date: 20201103
  Serious: Yes (Other)
  Sender: FDA-Public Use
  Company Number: US-BAYER-2020-164822

PATIENT
  Sex: Female

DRUGS (1)
  1. KYLEENA [Suspect]
     Active Substance: LEVONORGESTREL
     Indication: CONTRACEPTION
     Dosage: 17.5 ?G PER DAY CONTINOUSLY
     Route: 015
     Dates: start: 20200720, end: 20200727

REACTIONS (7)
  - Device malfunction [None]
  - Complication of device removal [None]
  - Abdominal pain [None]
  - Device breakage [None]
  - Complication of device insertion [None]
  - Device physical property issue [None]
  - Uterine perforation [None]

NARRATIVE: CASE EVENT DATE: 20200720
